FAERS Safety Report 5647793-3 (Version None)
Quarter: 2008Q1

REPORT INFORMATION
  Report Type: 
  Country: None (occurrence: None)
  Receive Date: 20080303
  Receipt Date: 20080220
  Transmission Date: 20080703
  Serious: Yes (Other)
  Sender: FDA-Public Use
  Company Number: US-PFIZER INC-2008016440

PATIENT
  Sex: Female
  Weight: 62.1 kg

DRUGS (8)
  1. CHANTIX [Suspect]
     Indication: EX-SMOKER
     Route: 048
     Dates: start: 20080212, end: 20080220
  2. HYDROCODONE BITARTRATE [Concomitant]
  3. AMLODIPINE BESYLATE/VALSARTAN [Concomitant]
  4. TRAZODONE HCL [Concomitant]
  5. AMBIEN [Concomitant]
  6. OXYCODONE HCL [Concomitant]
  7. OXYCONTIN [Concomitant]
  8. VALIUM [Concomitant]

REACTIONS (14)
  - ABNORMAL DREAMS [None]
  - AGITATION [None]
  - ANXIETY [None]
  - CONSTIPATION [None]
  - DYSGEUSIA [None]
  - FLATULENCE [None]
  - HYPERVIGILANCE [None]
  - IMPULSIVE BEHAVIOUR [None]
  - INSOMNIA [None]
  - MALAISE [None]
  - MUSCULOSKELETAL STIFFNESS [None]
  - RESTLESSNESS [None]
  - SMOKER [None]
  - WRONG TECHNIQUE IN DRUG USAGE PROCESS [None]
